FAERS Safety Report 7652550-2 (Version None)
Quarter: 2011Q3

REPORT INFORMATION
  Report Type: 
  Country: None (occurrence: None)
  Receive Date: 20110728
  Receipt Date: 20110715
  Transmission Date: 20111222
  Serious: Yes (Hospitalization)
  Sender: FDA-Public Use
  Company Number: 2011001811

PATIENT
  Age: 65 Year
  Sex: Female
  Weight: 73 kg

DRUGS (24)
  1. LIPITOR [Concomitant]
  2. LISINOPRIL [Concomitant]
  3. MULTIVITAMINS (ASCORBIC ACID, ERGOCALCIFEROL, FOLIC ACID, NICOTINAMIDE [Concomitant]
  4. MS CONTIN [Concomitant]
  5. DELSYM [Concomitant]
  6. AMBIEN [Concomitant]
  7. IMODIUM [Concomitant]
  8. NEURONTIN [Concomitant]
  9. SYNTHROID [Concomitant]
  10. ERLOTINIB HYDROCHLORIDE [Suspect]
     Indication: LUNG NEOPLASM MALIGNANT
     Dosage: 150 MG, UID/QD, ORAL; 150 MG, UID, ORAL
     Route: 048
     Dates: start: 20100820, end: 20100926
  11. ERLOTINIB HYDROCHLORIDE [Suspect]
     Indication: LUNG NEOPLASM MALIGNANT
     Dosage: 150 MG, UID/QD, ORAL; 150 MG, UID, ORAL
     Route: 048
     Dates: start: 20101006, end: 20101008
  12. MAGNESIUM SULFATE [Concomitant]
  13. MARINOL [Concomitant]
  14. MS CONTIN [Concomitant]
  15. ZOFRAN [Concomitant]
  16. SORAFENIB (SORAFENIB) [Suspect]
     Indication: LUNG NEOPLASM MALIGNANT
     Dosage: 200 MG, BID, ORAL; 200 MG, BID, ORAL
     Route: 048
     Dates: start: 20100903, end: 20100926
  17. SORAFENIB (SORAFENIB) [Suspect]
     Indication: LUNG NEOPLASM MALIGNANT
     Dosage: 200 MG, BID, ORAL; 200 MG, BID, ORAL
     Route: 048
     Dates: start: 20101006, end: 20101008
  18. OMEPRAZOLE [Concomitant]
  19. BYETTA [Concomitant]
  20. LANTUS [Concomitant]
  21. GLUCOPHAGE [Concomitant]
  22. ASPIRIN [Concomitant]
  23. IBUPROFEN [Concomitant]
  24. ALEVE [Concomitant]

REACTIONS (11)
  - FATIGUE [None]
  - FEELING ABNORMAL [None]
  - URINARY TRACT INFECTION [None]
  - PYREXIA [None]
  - NAUSEA [None]
  - ASTHENIA [None]
  - LUNG CONSOLIDATION [None]
  - VOMITING [None]
  - PSEUDOMONAS TEST POSITIVE [None]
  - SEPSIS [None]
  - ATELECTASIS [None]
